FAERS Safety Report 5429476-8 (Version None)
Quarter: 2007Q3

REPORT INFORMATION
  Report Type: 
  Country: None (occurrence: None)
  Receive Date: 20070829
  Receipt Date: 20070821
  Transmission Date: 20080115
  Serious: Yes (Other)
  Sender: FDA-Public Use
  Company Number: B0480605A

PATIENT
  Sex: Male

DRUGS (3)
  1. MALARONE [Suspect]
     Indication: MALARIA PROPHYLAXIS
     Dosage: 1TAB PER DAY
     Route: 048
     Dates: start: 20070301
  2. WARFARIN [Concomitant]
     Route: 048
     Dates: start: 20030101, end: 20070601
  3. UNKNOWN MEDICATION [Concomitant]

REACTIONS (5)
  - ANAEMIA [None]
  - BONE MARROW FAILURE [None]
  - HAEMATOCRIT DECREASED [None]
  - RED BLOOD CELL COUNT DECREASED [None]
  - THROMBOCYTOPENIA [None]
